FAERS Safety Report 23576817 (Version 3)
Quarter: 2025Q2

REPORT INFORMATION
  Report Type: Report from Study
  Country: US (occurrence: US)
  Receive Date: 20240228
  Receipt Date: 20250407
  Transmission Date: 20250717
  Serious: Yes (Death, Other)
  Sender: TAKEDA
  Company Number: US-TAKEDA-2024TUS018644

PATIENT
  Age: 69 Year
  Sex: Female

DRUGS (2)
  1. FRUQUINTINIB [Suspect]
     Active Substance: FRUQUINTINIB
     Indication: Colon cancer
     Dosage: 1 MILLIGRAM, 1/WEEK
     Dates: start: 20240119
  2. FRUQUINTINIB [Suspect]
     Active Substance: FRUQUINTINIB
     Dosage: UNK UNK, QD
     Dates: start: 20240124, end: 20240324

REACTIONS (3)
  - Death [Fatal]
  - Product dose omission issue [Recovered/Resolved]
  - Product supply issue [Recovered/Resolved]

NARRATIVE: CASE EVENT DATE: 20240324
